FAERS Safety Report 25947368 (Version 1)
Quarter: 2025Q4

REPORT INFORMATION
  Report Type: Spontaneous
  Country: EU (occurrence: EU)
  Receive Date: 20251022
  Receipt Date: 20251022
  Transmission Date: 20260118
  Serious: Yes (Death, Other)
  Sender: TEVA
  Company Number: EU-EMA-DD-20251001-7482715-080158

PATIENT
  Age: 14 Year
  Sex: Male

DRUGS (2)
  1. METHOTREXATE [Suspect]
     Active Substance: METHOTREXATE
     Indication: Acute lymphocytic leukaemia
     Dosage: METHOTREXATE SODIUM
     Route: 048
     Dates: start: 20140804, end: 20150520
  2. PURINETHOL [Suspect]
     Active Substance: MERCAPTOPURINE
     Indication: Acute lymphocytic leukaemia
     Route: 048
     Dates: start: 20140804, end: 20150520

REACTIONS (8)
  - Respiratory failure [Fatal]
  - Disease progression [Unknown]
  - Haemoglobin decreased [Unknown]
  - Hepatomegaly [Unknown]
  - Leukaemic infiltration [Fatal]
  - Angiopathy [Fatal]
  - Acute lymphocytic leukaemia [Unknown]
  - Splenomegaly [Unknown]

NARRATIVE: CASE EVENT DATE: 20150507
